FAERS Safety Report 12473472 (Version 1)
Quarter: 2016Q2

REPORT INFORMATION
  Report Type: Other
  Country: DE (occurrence: DE)
  Receive Date: 20160616
  Receipt Date: 20160616
  Transmission Date: 20160815
  Serious: Yes (Other)
  Sender: FDA-Public Use
  Company Number: DE-MYLANLABS-2016M1024116

PATIENT

DRUGS (2)
  1. ATORVASTATIN [Suspect]
     Active Substance: ATORVASTATIN
     Indication: HYPERLIPIDAEMIA
     Dosage: 10 MG, UNK
     Route: 048
     Dates: start: 201509, end: 201511
  2. SIMVASTATIN. [Suspect]
     Active Substance: SIMVASTATIN
     Indication: HYPERLIPIDAEMIA
     Dosage: 10 MG, UNK
     Route: 048
     Dates: start: 2013

REACTIONS (4)
  - Nightmare [Unknown]
  - Myalgia [Unknown]
  - Nightmare [Unknown]
  - Myalgia [Unknown]

NARRATIVE: CASE EVENT DATE: 2013
